FAERS Safety Report 13759477 (Version 2)
Quarter: 2017Q3

REPORT INFORMATION
  Report Type: Spontaneous
  Country: CH (occurrence: CH)
  Receive Date: 20170717
  Receipt Date: 20170801
  Transmission Date: 20171127
  Serious: Yes (Other)
  Sender: FDA-Public Use
  Company Number: CH-PFIZER INC-2017301430

PATIENT
  Age: 59 Year
  Sex: Male
  Weight: 110 kg

DRUGS (1)
  1. XELJANZ [Suspect]
     Active Substance: TOFACITINIB CITRATE
     Indication: PSORIATIC ARTHROPATHY
     Dosage: 10 MG, 2X/DAY
     Route: 048
     Dates: start: 20150529

REACTIONS (2)
  - Product use in unapproved indication [Unknown]
  - Rhabdomyolysis [Not Recovered/Not Resolved]

NARRATIVE: CASE EVENT DATE: 201706
